FAERS Safety Report 16767741 (Version 1)
Quarter: 2019Q3

REPORT INFORMATION
  Report Type: Spontaneous
  Country: IT (occurrence: IT)
  Receive Date: 20190903
  Receipt Date: 20190903
  Transmission Date: 20191005
  Serious: Yes (Other)
  Sender: FDA-Public Use
  Company Number: IT-ACTELION-A-CH2019-195132

PATIENT

DRUGS (4)
  1. BOSENTAN. [Suspect]
     Active Substance: BOSENTAN
     Indication: VASCULAR RESISTANCE PULMONARY INCREASED
     Dosage: 0.5 MG/KG, BID
     Route: 048
  2. OPSUMIT [Suspect]
     Active Substance: MACITENTAN
     Indication: VASCULAR RESISTANCE PULMONARY INCREASED
  3. BOSENTAN. [Suspect]
     Active Substance: BOSENTAN
     Indication: FONTAN PROCEDURE
     Dosage: 1 MG/KG, BID
     Route: 048
  4. OPSUMIT [Suspect]
     Active Substance: MACITENTAN
     Indication: FONTAN PROCEDURE
     Dosage: 10 MG, QD
     Route: 048

REACTIONS (10)
  - Arterial stent insertion [Unknown]
  - Dyspnoea [Unknown]
  - Ventricular extrasystoles [Unknown]
  - Therapeutic embolisation [Unknown]
  - Oxygen saturation decreased [Unknown]
  - Blood pressure systolic decreased [Unknown]
  - General physical health deterioration [Unknown]
  - Exercise tolerance decreased [Unknown]
  - Fatigue [Unknown]
  - Therapeutic product effective for unapproved indication [Unknown]
